FAERS Safety Report 24031365 (Version 3)
Quarter: 2024Q3

REPORT INFORMATION
  Report Type: Report from Study
  Country: HU (occurrence: HU)
  Receive Date: 20240629
  Receipt Date: 20240902
  Transmission Date: 20241017
  Serious: Yes (Hospitalization)
  Sender: ABBVIE
  Company Number: HU-ABBVIE-5819510

PATIENT
  Age: 81 Year
  Sex: Female

DRUGS (11)
  1. CARBIDOPA\LEVODOPA [Suspect]
     Active Substance: CARBIDOPA\LEVODOPA
     Indication: Parkinson^s disease
     Dosage: MORNING DOSE: 8.0 ML; CONTINUOUS DOSE: 3.2 ML/HOUR; EXTRA DOSE: 1.5 ML
     Route: 050
     Dates: start: 20210611, end: 202407
  2. CARBIDOPA\LEVODOPA [Suspect]
     Active Substance: CARBIDOPA\LEVODOPA
     Dosage: MORNING DOSE: 7.0 ML; CONTINUOUS DOSE: 3.1 ML/HOUR; EXTRA DOSE: 1.5 ML
     Route: 050
     Dates: start: 202407
  3. STALEVO [Concomitant]
     Active Substance: CARBIDOPA\ENTACAPONE\LEVODOPA
     Indication: Parkinson^s disease
     Dosage: 100 MG LEVODOPA, 25 MG CARBIDOPA, 200 MG ENTACAPONE /TABLET
     Route: 048
     Dates: start: 202407
  4. LORNOXICAM [Concomitant]
     Active Substance: LORNOXICAM
     Indication: Prophylaxis
     Dosage: 8 MILLIGRAM
     Route: 048
     Dates: start: 202407
  5. RAMIPRIL [Concomitant]
     Active Substance: RAMIPRIL
     Indication: Hypertension
     Dosage: 1.25 MILLIGRAM, FORM STRENGTH: 2.5 MILLIGRAM, FREQUENCY TEXT: HALF TABLET DAILY
     Route: 048
  6. METOPROLOL [Concomitant]
     Active Substance: METOPROLOL
     Indication: Arrhythmia
     Dosage: 100 MILLIGRAM
     Route: 048
  7. METOPROLOL [Concomitant]
     Active Substance: METOPROLOL
     Indication: Arrhythmia
     Dosage: FORM STRENGTH 100 MILLIGRAM
     Route: 048
  8. XANAX [Concomitant]
     Active Substance: ALPRAZOLAM
     Indication: Sedative therapy
     Dosage: 0.5 MILLIGRAM
     Route: 048
     Dates: start: 202407
  9. PANTOPRAZOLE [Concomitant]
     Active Substance: PANTOPRAZOLE
     Indication: Prophylaxis
     Dosage: FORM STRENGTH 40 MILLIGRAM
     Route: 048
  10. SCIPPA [Concomitant]
     Indication: Depression
     Dosage: 20 MILLIGRAM
     Route: 048
  11. ALLOPURINOL [Concomitant]
     Active Substance: ALLOPURINOL
     Indication: Gout
     Dosage: 300 MILLIGRAM
     Route: 048

REACTIONS (4)
  - Femoral neck fracture [Recovering/Resolving]
  - Fall [Unknown]
  - Mania [Not Recovered/Not Resolved]
  - Hallucination [Recovered/Resolved]

NARRATIVE: CASE EVENT DATE: 20240624
